FAERS Safety Report 5824585-3 (Version None)
Quarter: 2008Q3

REPORT INFORMATION
  Report Type: 
  Country: None (occurrence: None)
  Receive Date: 20080728
  Receipt Date: 20080124
  Transmission Date: 20090109
  Serious: No
  Sender: FDA-Public Use
  Company Number: US-BAYER-200713447BCC

PATIENT
  Age: 60 Year
  Sex: Female
  Weight: 64 kg

DRUGS (8)
  1. ALEVE (CAPLET) [Suspect]
     Indication: BACK PAIN
     Dosage: UNIT DOSE: 220 MG
     Route: 048
  2. ALEVE (CAPLET) [Suspect]
     Dosage: TOTAL DAILY DOSE: 220 MG  UNIT DOSE: 220 MG
     Route: 048
     Dates: start: 20070601, end: 20071001
  3. ASPIRIN [Suspect]
     Indication: DRUG USE FOR UNKNOWN INDICATION
     Dosage: TOTAL DAILY DOSE: 81 MG  UNIT DOSE: 81 MG
     Route: 048
  4. TENORETIC 100 [Concomitant]
  5. NIFEDIPINE [Concomitant]
     Indication: HYPERTENSION
     Dates: start: 20050101
  6. FOSAMAX [Concomitant]
  7. ATENOLOL [Concomitant]
     Indication: HYPERTENSION
     Dates: start: 20050101
  8. CHLORTHALIDONE [Concomitant]
     Indication: HYPERTENSION
     Dates: start: 20050101

REACTIONS (2)
  - ALOPECIA [None]
  - BLOOD TESTOSTERONE INCREASED [None]
